FAERS Safety Report 4411412-4 (Version None)
Quarter: 2004Q3

REPORT INFORMATION
  Report Type: 
  Country: None (occurrence: None)
  Receive Date: 20040727
  Receipt Date: 20040714
  Transmission Date: 20050211
  Serious: Yes (Death, Hospitalization)
  Sender: FDA-Public Use
  Company Number: 2004043169

PATIENT
  Age: 48 Year
  Sex: Female

DRUGS (5)
  1. NORVASC [Suspect]
     Indication: HYPERTENSION
     Dosage: 5 MG (1 IN 1 D) ORAL
     Route: 048
     Dates: start: 20031023, end: 20040220
  2. KAKKON-TO (HERBAL EXTRACTS NOS) [Suspect]
     Indication: ILL-DEFINED DISORDER
     Dosage: ORAL
     Route: 048
     Dates: start: 20040228, end: 20040305
  3. BENIDIPINE HYDROCHLORIDE (BENIDIPINE HYDROCHLORIDE) [Concomitant]
  4. TRICHLORMETHIAZIDE [Concomitant]
  5. QUINAPRIL HCL [Concomitant]

REACTIONS (26)
  - ALANINE AMINOTRANSFERASE INCREASED [None]
  - ASPARTATE AMINOTRANSFERASE INCREASED [None]
  - BLOOD CHLORIDE INCREASED [None]
  - BLOOD CREATINE PHOSPHOKINASE INCREASED [None]
  - BLOOD CREATININE INCREASED [None]
  - BLOOD LACTATE DEHYDROGENASE INCREASED [None]
  - BLOOD POTASSIUM INCREASED [None]
  - BLOOD PRESSURE INCREASED [None]
  - BLOOD UREA INCREASED [None]
  - C-REACTIVE PROTEIN INCREASED [None]
  - DERMATITIS CONTACT [None]
  - DRUG ERUPTION [None]
  - ELECTROCARDIOGRAM ST SEGMENT DEPRESSION [None]
  - GAMMA-GLUTAMYLTRANSFERASE INCREASED [None]
  - HAEMATOCRIT DECREASED [None]
  - HAEMOGLOBIN DECREASED [None]
  - HEPATIC FUNCTION ABNORMAL [None]
  - INTERSTITIAL LUNG DISEASE [None]
  - LABORATORY TEST ABNORMAL [None]
  - MALAISE [None]
  - PNEUMONIA [None]
  - PROTEIN TOTAL DECREASED [None]
  - RASH GENERALISED [None]
  - SUFFOCATION FEELING [None]
  - WHITE BLOOD CELL COUNT INCREASED [None]
  - WOLFF-PARKINSON-WHITE SYNDROME [None]
